FAERS Safety Report 6040069-4 (Version None)
Quarter: 2009Q1

REPORT INFORMATION
  Report Type: 
  Country: None (occurrence: None)
  Receive Date: 20090116
  Receipt Date: 20071204
  Transmission Date: 20090719
  Serious: No
  Sender: FDA-Public Use
  Company Number: US-BRISTOL-MYERS SQUIBB COMPANY-14003016

PATIENT
  Age: 50 Year
  Sex: Male
  Weight: 50 kg

DRUGS (4)
  1. ABILIFY [Suspect]
     Indication: ABNORMAL BEHAVIOUR
     Dosage: INCREASED TO 15 MG IN AUGUST 2007 AND TO 20 MG IN SEPTEMBER 2007.
     Dates: start: 20070301
  2. KLONOPIN [Concomitant]
  3. SEROQUEL [Concomitant]
  4. TRILEPTAL [Concomitant]

REACTIONS (5)
  - DIZZINESS [None]
  - LETHARGY [None]
  - MASKED FACIES [None]
  - MOTOR DYSFUNCTION [None]
  - SPEECH DISORDER [None]
